FAERS Safety Report 9381013 (Version 5)
Quarter: 2013Q4

REPORT INFORMATION
  Report Type: Report from Study
  Country: AU (occurrence: AU)
  Receive Date: 20130703
  Receipt Date: 20131206
  Transmission Date: 20140711
  Serious: Yes (Disabling, Other)
  Sender: FDA-Public Use
  Company Number: AU-ROCHE-1242608

PATIENT
  Age: 61 Year
  Sex: Female

DRUGS (13)
  1. ACTEMRA [Suspect]
     Indication: RHEUMATOID ARTHRITIS
     Route: 042
     Dates: start: 20121217
  2. DIAZEPAM [Concomitant]
     Dosage: 1 HS PO PRN
     Route: 048
  3. ENDEP [Concomitant]
     Dosage: 1 TAB PO HS, NOCTE
     Route: 048
  4. MOBIC [Concomitant]
     Route: 048
  5. NEXIUM [Concomitant]
     Route: 065
  6. PANAFCORTELONE [Concomitant]
     Route: 048
  7. PRISTIQ [Concomitant]
     Route: 048
  8. TARGIN [Concomitant]
     Indication: ANALGESIC THERAPY
     Route: 065
  9. TARGIN [Concomitant]
     Route: 065
  10. TARGIN [Concomitant]
     Dosage: 20/10 MG
     Route: 065
  11. FOLIC ACID [Concomitant]
     Route: 065
  12. VITAMIN B12 [Concomitant]
     Route: 065
  13. AUGMENTIN [Concomitant]
     Indication: URINARY TRACT INFECTION
     Route: 048
     Dates: start: 20130824

REACTIONS (35)
  - Dyspnoea [Not Recovered/Not Resolved]
  - Cough [Not Recovered/Not Resolved]
  - Emphysema [Unknown]
  - Paraesthesia [Not Recovered/Not Resolved]
  - Back pain [Not Recovered/Not Resolved]
  - Local swelling [Not Recovered/Not Resolved]
  - Cheilitis [Recovering/Resolving]
  - Swelling face [Unknown]
  - Ear injury [Recovered/Resolved]
  - Paraesthesia [Not Recovered/Not Resolved]
  - Hypoaesthesia [Not Recovered/Not Resolved]
  - Arthralgia [Not Recovered/Not Resolved]
  - Back pain [Not Recovered/Not Resolved]
  - Rash [Recovering/Resolving]
  - Chapped lips [Recovering/Resolving]
  - Gingival pain [Recovering/Resolving]
  - Weight increased [Not Recovered/Not Resolved]
  - Cushingoid [Unknown]
  - Drug effect decreased [Unknown]
  - Urinary tract infection [Recovering/Resolving]
  - Immunodeficiency [Not Recovered/Not Resolved]
  - Musculoskeletal pain [Not Recovered/Not Resolved]
  - Back pain [Not Recovered/Not Resolved]
  - Pain in extremity [Not Recovered/Not Resolved]
  - Pain in extremity [Not Recovered/Not Resolved]
  - Local swelling [Not Recovered/Not Resolved]
  - Arthralgia [Not Recovered/Not Resolved]
  - Joint swelling [Not Recovered/Not Resolved]
  - Pain in extremity [Not Recovered/Not Resolved]
  - Joint swelling [Not Recovered/Not Resolved]
  - Pain in extremity [Not Recovered/Not Resolved]
  - Local swelling [Not Recovered/Not Resolved]
  - Oral pain [Recovering/Resolving]
  - Urinary incontinence [Not Recovered/Not Resolved]
  - Faecal incontinence [Not Recovered/Not Resolved]
